FAERS Safety Report 7080346-1 (Version None)
Quarter: 2010Q4

REPORT INFORMATION
  Report Type: 
  Country: None (occurrence: None)
  Receive Date: 20101022
  Receipt Date: 20101007
  Transmission Date: 20110411
  Serious: Yes (Life-Threatening, Hospitalization)
  Sender: FDA-Public Use
  Company Number: 2010SP002653

PATIENT
  Age: 82 Year
  Sex: Male

DRUGS (5)
  1. ALVESCO [Suspect]
     Indication: ASTHMA
     Dosage: 200 UG;QD;INHALATION
     Route: 055
     Dates: start: 20090918, end: 20091012
  2. MUCOSOLVAN /00546001/ [Concomitant]
  3. MUCOTRON [Concomitant]
  4. HOKUNALIN [Concomitant]
  5. PREV MEDS [Concomitant]

REACTIONS (8)
  - ACIDOSIS [None]
  - ASPARTATE AMINOTRANSFERASE INCREASED [None]
  - BLOOD GLUCOSE INCREASED [None]
  - CARDIAC ASTHMA [None]
  - CARDIAC FAILURE CONGESTIVE [None]
  - CONDITION AGGRAVATED [None]
  - CORONARY ARTERY STENOSIS [None]
  - RESPIRATORY FAILURE [None]
